FAERS Safety Report 14210271 (Version 2)
Quarter: 2018Q1

REPORT INFORMATION
  Report Type: Spontaneous
  Country: US (occurrence: US)
  Receive Date: 20171121
  Receipt Date: 20180130
  Transmission Date: 20180508
  Serious: Yes (Hospitalization, Other)
  Sender: FDA-Public Use
  Company Number: US-BAYER-2017-221037

PATIENT
  Age: 43 Year
  Sex: Male
  Weight: 172.34 kg

DRUGS (2)
  1. CIPRO [Suspect]
     Active Substance: CIPROFLOXACIN HYDROCHLORIDE
     Indication: CELLULITIS
     Dosage: 500 MG, UNK
     Dates: start: 20020415, end: 20020417
  2. CIPRO [Suspect]
     Active Substance: CIPROFLOXACIN HYDROCHLORIDE
     Indication: CELLULITIS
     Dosage: 400 MG, BID
     Route: 041
     Dates: start: 200204

REACTIONS (7)
  - Injury [None]
  - Anxiety [None]
  - Neuropathy peripheral [None]
  - Pain [None]
  - Anhedonia [None]
  - Hospitalisation [None]
  - Emotional distress [None]

NARRATIVE: CASE EVENT DATE: 20060424
